FAERS Safety Report 20862723 (Version 1)
Quarter: 2022Q2

REPORT INFORMATION
  Report Type: Spontaneous
  Country: US (occurrence: US)
  Receive Date: 20220523
  Receipt Date: 20220523
  Transmission Date: 20220720
  Serious: Yes (Other)
  Sender: FDA-Public Use
  Company Number: US-SIGMAPHARM LABORATORIES, LLC-2022SIG00040

PATIENT
  Age: 70 Year
  Sex: Female

DRUGS (3)
  1. ACITRETIN [Suspect]
     Active Substance: ACITRETIN
     Indication: Systemic lupus erythematosus
     Dosage: 25 (UNSPECIFIED), 1X/DAY
     Route: 048
  2. ACITRETIN [Suspect]
     Active Substance: ACITRETIN
     Indication: Immune system disorder
     Dosage: UNK (UPPED DOSAGE)
  3. ACITRETIN [Suspect]
     Active Substance: ACITRETIN
     Indication: Neoplasm prophylaxis

REACTIONS (2)
  - Recurrent cancer [Unknown]
  - Off label use [Not Recovered/Not Resolved]
